FAERS Safety Report 18165602 (Version 5)
Quarter: 2020Q4

REPORT INFORMATION
  Report Type: Spontaneous
  Country: PL (occurrence: PL)
  Receive Date: 20200819
  Receipt Date: 20201102
  Transmission Date: 20210113
  Serious: Yes (Other)
  Sender: FDA-Public Use
  Company Number: PL-BEH-2020121398

PATIENT
  Age: 24 Year
  Sex: Female

DRUGS (2)
  1. RHOPHYLAC [Suspect]
     Active Substance: HUMAN RHO(D) IMMUNE GLOBULIN
     Indication: RHESUS INCOMPATIBILITY
     Dosage: 300 MICROGRAM, SINGLE - AN INJECTION AFTER THE 1ST PREGNANCY/CHILDBIRTH
     Route: 030
     Dates: start: 20151223, end: 20151223
  2. RHOPHYLAC [Suspect]
     Active Substance: HUMAN RHO(D) IMMUNE GLOBULIN
     Indication: RHESUS INCOMPATIBILITY
     Dosage: 300 MICROGRAM, SINGLE - AN INJECTION AFTER THE 1ST PREGNANCY/CHILDBIRTH
     Route: 030
     Dates: start: 20151223, end: 20151223

REACTIONS (6)
  - Drug ineffective [Unknown]
  - Rhesus antibodies positive [Unknown]
  - Hypersensitivity [Unknown]
  - Incorrect dose administered [Unknown]
  - Rhesus antibodies positive [Unknown]
  - Rhesus antibodies positive [Unknown]

NARRATIVE: CASE EVENT DATE: 20170312
